FAERS Safety Report 10198807 (Version 2)
Quarter: 2014Q2

REPORT INFORMATION
  Report Type: Spontaneous
  Country: US (occurrence: US)
  Receive Date: 20140527
  Receipt Date: 20140527
  Transmission Date: 20141212
  Serious: Yes (Other)
  Sender: FDA-Public Use
  Company Number: US-CELGENEUS-163-21880-13090794

PATIENT
  Age: 91 Year
  Sex: Male

DRUGS (9)
  1. REVLIMID [Suspect]
     Indication: PLASMA CELL MYELOMA
     Dosage: 15 MILLIGRAM
     Route: 048
     Dates: start: 201203
  2. REVLIMID [Suspect]
     Dosage: 10 MILLIGRAM
     Route: 048
     Dates: start: 201205
  3. REVLIMID [Suspect]
     Dosage: 7.5 MILLIGRAM
     Route: 048
     Dates: start: 20130903, end: 20131119
  4. CALCIUM GLUCONATE [Concomitant]
     Indication: PRODUCT USED FOR UNKNOWN INDICATION
     Dosage: 600 MILLIGRAM
     Route: 048
  5. FOLIC ACID [Concomitant]
     Indication: PRODUCT USED FOR UNKNOWN INDICATION
     Dosage: 1 MILLIGRAM
     Route: 048
  6. PROTONIX [Concomitant]
     Indication: GASTROOESOPHAGEAL REFLUX DISEASE
     Dosage: 40 MILLIGRAM
     Route: 048
  7. TAMSULOSIN [Concomitant]
     Indication: GASTROOESOPHAGEAL REFLUX DISEASE
     Dosage: .4 MILLIGRAM
     Route: 048
  8. METOPROLOL [Concomitant]
     Indication: HYPERTENSION
     Dosage: 50 MILLIGRAM
     Route: 048
  9. VELCADE [Concomitant]
     Indication: PLASMA CELL MYELOMA
     Route: 058

REACTIONS (4)
  - Mesothelioma [Unknown]
  - Blood immunoglobulin G increased [Recovering/Resolving]
  - Light chain analysis increased [Recovering/Resolving]
  - Light chain analysis abnormal [Recovering/Resolving]
